FAERS Safety Report 12160055 (Version 1)
Quarter: 2016Q1

REPORT INFORMATION
  Report Type: Spontaneous
  Country: US (occurrence: US)
  Receive Date: 20160308
  Receipt Date: 20160308
  Transmission Date: 20160526
  Serious: No
  Sender: FDA-Public Use
  Company Number: US-SA-2015SA029691

PATIENT

DRUGS (1)
  1. ELITEK [Suspect]
     Active Substance: RASBURICASE
     Route: 065

REACTIONS (2)
  - Blood uric acid decreased [Unknown]
  - False positive investigation result [Unknown]

NARRATIVE: CASE EVENT DATE: 20150304
